FAERS Safety Report 8582394-9 (Version None)
Quarter: 2012Q3

REPORT INFORMATION
  Report Type: 
  Country: None (occurrence: None)
  Receive Date: 20120809
  Receipt Date: 20120803
  Transmission Date: 20120928
  Serious: Yes (Hospitalization)
  Sender: FDA-Public Use
  Company Number: US-GLAXOSMITHKLINE-A0988323A

PATIENT
  Age: 57 Year
  Sex: Female

DRUGS (3)
  1. APRISO [Concomitant]
  2. SYNTHROID [Concomitant]
  3. FLOVENT [Suspect]
     Indication: ASTHMA
     Dosage: 2PUFF PER DAY
     Route: 055
     Dates: start: 19920101

REACTIONS (5)
  - CORONARY ARTERY OCCLUSION [None]
  - THROMBOSIS [None]
  - ARTERIOSCLEROSIS [None]
  - MYOCARDIAL INFARCTION [None]
  - BLOOD PRESSURE DECREASED [None]
